FAERS Safety Report 7656643-5 (Version None)
Quarter: 2011Q3

REPORT INFORMATION
  Report Type: 
  Country: None (occurrence: None)
  Receive Date: 20110804
  Receipt Date: 20110725
  Transmission Date: 20111222
  Serious: Yes (Other)
  Sender: FDA-Public Use
  Company Number: CA-JNJFOC-20110712257

PATIENT
  Sex: Female
  Weight: 95 kg

DRUGS (12)
  1. PRILOSEC [Concomitant]
  2. DOCUSATE [Concomitant]
  3. FOLIC ACID [Concomitant]
  4. ELAVIL [Concomitant]
  5. HYDRODIURIL [Concomitant]
  6. REMICADE [Suspect]
     Indication: RHEUMATOID ARTHRITIS
     Route: 042
     Dates: start: 20110221
  7. VITAMIN B-12 [Concomitant]
     Route: 050
  8. METHOTREXATE [Concomitant]
     Route: 050
  9. POTASSIUM CHLORIDE [Concomitant]
  10. ATENOLOL [Concomitant]
  11. CALCIUM ACETATE [Concomitant]
  12. VITAMIN D [Concomitant]

REACTIONS (1)
  - VISION BLURRED [None]
